FAERS Safety Report 9552813 (Version 3)
Quarter: 2013Q4

REPORT INFORMATION
  Report Type: Spontaneous
  Country: JP (occurrence: JP)
  Receive Date: 20130925
  Receipt Date: 20131226
  Transmission Date: 20140711
  Serious: Yes (Hospitalization, Other)
  Sender: FDA-Public Use
  Company Number: JP-PFIZER INC-2013272332

PATIENT
  Age: 57 Year
  Sex: Female
  Weight: 57 kg

DRUGS (9)
  1. CELECOX [Suspect]
     Indication: RHEUMATOID ARTHRITIS
     Dosage: 200 MG, 2X/DAY
     Route: 048
     Dates: start: 20120423
  2. RHEUMATREX [Suspect]
     Indication: RHEUMATOID ARTHRITIS
     Dosage: 3 MG, 2X/WEEK
     Route: 048
     Dates: start: 20120814, end: 20130906
  3. PREDNISOLONE [Suspect]
     Indication: RHEUMATOID ARTHRITIS
     Dosage: 2 MG, 2X/DAY
     Route: 048
     Dates: start: 20130520
  4. TAKEPRON [Suspect]
     Indication: PROPHYLAXIS
     Dosage: 15 MG, 1X/DAY
     Route: 048
     Dates: start: 20120423
  5. FOLIAMIN [Suspect]
     Indication: PROPHYLAXIS
     Dosage: 5 MG, WEEKLY
     Route: 048
     Dates: start: 20120607
  6. BENET [Suspect]
     Indication: OSTEOPOROSIS PROPHYLAXIS
     Dosage: 17.5 MG, 1X/DAY
     Route: 048
     Dates: start: 20120512
  7. OZEX [Suspect]
     Indication: GASTROENTERITIS
     Dosage: UNK
     Route: 048
     Dates: start: 20130905, end: 20130905
  8. BLINDED THERAPY [Concomitant]
     Indication: RHEUMATOID ARTHRITIS
     Dosage: 200MG EVERY 2 WEEKS
     Route: 058
     Dates: start: 20120604, end: 20121105
  9. CDP-870 [Concomitant]
     Indication: RHEUMATOID ARTHRITIS
     Dosage: 200 MG, EVERY 2 WEEKS
     Route: 058
     Dates: start: 20120604, end: 20130826

REACTIONS (6)
  - Klebsiella sepsis [Recovered/Resolved]
  - Klebsiella infection [Recovered/Resolved]
  - Gastroenteritis [Unknown]
  - Oral herpes [Recovering/Resolving]
  - Back pain [Recovered/Resolved]
  - Diarrhoea [Recovering/Resolving]
